FAERS Safety Report 9568560 (Version 2)
Quarter: 2013Q3

REPORT INFORMATION
  Report Type: Spontaneous
  Country: US (occurrence: US)
  Receive Date: 20130930
  Receipt Date: 20130930
  Transmission Date: 20140515
  Serious: No
  Sender: FDA-Public Use
  Company Number: US-AMGEN-USASP2013060515

PATIENT
  Age: 59 Year
  Sex: Female
  Weight: 69.84 kg

DRUGS (15)
  1. ENBREL [Suspect]
     Indication: PRODUCT USED FOR UNKNOWN INDICATION
     Dosage: 50 MG, 2 TIMES/WK FOR THREE MONTHS
     Route: 058
  2. FLUTICASONE [Concomitant]
     Dosage: 50 MUG, UNK
  3. BISOPROL [Concomitant]
     Dosage: 10 MG, UNK
  4. PAROXETINE [Concomitant]
     Dosage: 20 MG, UNK
  5. AMLODIPINE [Concomitant]
     Dosage: 5-10 MG
  6. BENAZEPRIL [Concomitant]
     Dosage: 5-10 MG
  7. B COMPLEX                          /06817001/ [Concomitant]
     Dosage: UNK
  8. NAPROXEN [Concomitant]
     Dosage: 500 MG, UNK
  9. VITAMIN C                          /00008001/ [Concomitant]
     Dosage: 500 MG, UNK
  10. ALIGN [Concomitant]
     Dosage: 4 MG, UNK
  11. MULTIVITAMINS, PLAIN [Concomitant]
     Dosage: UNK
  12. CALCIUM +D                         /07511201/ [Concomitant]
     Dosage: UNK
  13. VITAMIN B [Concomitant]
     Dosage: UNK
  14. PLUS + PLUS [Concomitant]
     Dosage: UNK
  15. MAGNESIUM [Concomitant]
     Dosage: 300 MG, UNK

REACTIONS (5)
  - Drug hypersensitivity [Unknown]
  - Injection site mass [Recovered/Resolved]
  - Injection site rash [Recovered/Resolved]
  - Injection site erythema [Recovered/Resolved]
  - Injection site warmth [Recovered/Resolved]
